FAERS Safety Report 8488673-8 (Version None)
Quarter: 2012Q3

REPORT INFORMATION
  Report Type: 
  Country: None (occurrence: None)
  Receive Date: 20120705
  Receipt Date: 20120704
  Transmission Date: 20120928
  Serious: Yes (Other)
  Sender: FDA-Public Use
  Company Number: DZ-PFIZER INC-2012156441

PATIENT
  Age: 62 Year
  Sex: Female

DRUGS (4)
  1. VASTAREL [Concomitant]
     Dosage: 20 MG, 3X/DAY
  2. LOPRESSOR [Concomitant]
     Dosage: UNK
  3. CELEBREX [Suspect]
     Indication: RHEUMATOID ARTHRITIS
     Dosage: 200 MG, 1X/DAY
     Route: 048
     Dates: start: 20120522, end: 20120523
  4. CELEBREX [Suspect]
     Indication: MUSCULOSKELETAL PAIN
     Dosage: 200 MG, 2X/DAY
     Route: 048
     Dates: start: 20120518, end: 20120521

REACTIONS (2)
  - CHEST PAIN [None]
  - CARDIOVASCULAR DISORDER [None]
